FAERS Safety Report 15762601 (Version 1)
Quarter: 2018Q4

REPORT INFORMATION
  Report Type: Report from Study
  Country: US (occurrence: US)
  Receive Date: 20181226
  Receipt Date: 20181226
  Transmission Date: 20190205
  Serious: No
  Sender: FDA-Public Use
  Company Number: US-THERATECHNOLOGIES, INC.-TH-2018-00409

PATIENT

DRUGS (34)
  1. ISENTRESS [Concomitant]
     Active Substance: RALTEGRAVIR POTASSIUM
     Dosage: 400 MG MILLIGRAM(S), UNK
     Dates: start: 20181008
  2. LINZESS [Concomitant]
     Active Substance: LINACLOTIDE
     Dosage: 145 ?G MICROGRAM(S), UNK
     Dates: start: 20180917
  3. LINZESS [Concomitant]
     Active Substance: LINACLOTIDE
     Dosage: 145 ?G MICROGRAM(S), UNK
     Dates: start: 20181014
  4. LINZESS [Concomitant]
     Active Substance: LINACLOTIDE
     Dosage: 290 ?G MICROGRAM(S), UNK
     Dates: start: 20180813
  5. NEURONTIN [Concomitant]
     Active Substance: GABAPENTIN
     Dosage: 100 MG MILLIGRAM(S), UNK
     Dates: start: 20111208
  6. TRUVADA [Concomitant]
     Active Substance: EMTRICITABINE\TENOFOVIR DISOPROXIL FUMARATE
     Dosage: 200/300
     Dates: start: 20111208
  7. TRUVADA [Concomitant]
     Active Substance: EMTRICITABINE\TENOFOVIR DISOPROXIL FUMARATE
     Dosage: 200/300
     Dates: start: 20181008
  8. VITAMIN B1 [Concomitant]
     Active Substance: THIAMINE HYDROCHLORIDE
     Dosage: 250 MG MILLIGRAM(S), UNK
     Dates: start: 20110503
  9. BUPROPION. [Concomitant]
     Active Substance: BUPROPION
     Dosage: 100 MG MILLIGRAM(S), UNK
     Dates: start: 20171009
  10. FLUCONAZOLE. [Concomitant]
     Active Substance: FLUCONAZOLE
     Dosage: 100 MG MILLIGRAM(S), UNK
     Dates: start: 20111208
  11. HYDROCODONE BITARTRATE AND ACETAMINOPHEN [Concomitant]
     Active Substance: ACETAMINOPHEN\HYDROCODONE BITARTRATE
     Dosage: 7.5/325 MG, TAB
     Dates: start: 20180917
  12. BUPROPION. [Concomitant]
     Active Substance: BUPROPION
     Dosage: 75 MG MILLIGRAM(S), UNK
     Dates: start: 20180618
  13. GABAPENTIN. [Concomitant]
     Active Substance: GABAPENTIN
     Dosage: 800 MG MILLIGRAM(S), UNK
     Dates: start: 20180910
  14. METOPROLOL TARTRATE. [Concomitant]
     Active Substance: METOPROLOL TARTRATE
     Dosage: 100 MG MILLIGRAM(S), UNK
     Dates: start: 20180514
  15. CYCLOBENZAPRIN HCL [Concomitant]
     Active Substance: CYCLOBENZAPRINE HYDROCHLORIDE
     Dosage: 10 MG MILLIGRAM(S), UNK
     Dates: start: 20181010
  16. INTELENCE [Concomitant]
     Active Substance: ETRAVIRINE
     Dosage: 100 MG MILLIGRAM(S), UNK
     Dates: start: 20111208
  17. METOPROLOL TARTRATE. [Concomitant]
     Active Substance: METOPROLOL TARTRATE
     Dosage: 100 MG MILLIGRAM(S), UNK
     Dates: start: 20181112
  18. MORPHINE SULFATE. [Concomitant]
     Active Substance: MORPHINE SULFATE
     Dosage: 60 MG MILLIGRAM(S), UNK
     Dates: start: 20181017
  19. OTHER THERAPEUTIC PRODUCTS [Concomitant]
     Active Substance: UNSPECIFIED INGREDIENT
     Dosage: 25 MG MILLIGRAM(S), UNK
     Dates: start: 20181028
  20. OMEPRAZOLE. [Concomitant]
     Active Substance: OMEPRAZOLE
     Dosage: 40 MG MILLIGRAM(S), UNK
     Dates: start: 20180723
  21. VITAMIN B12 [Concomitant]
     Active Substance: CYANOCOBALAMIN
     Dosage: 1000 UNK, UNK
     Dates: start: 20110503
  22. EGRIFTA [Suspect]
     Active Substance: TESAMORELIN
     Indication: HIV INFECTION
     Dosage: 2 MG MILLIGRAM(S), DAILY DOSE
     Route: 058
     Dates: start: 20110506
  23. CYCLOBENZAPRIN HCL [Concomitant]
     Active Substance: CYCLOBENZAPRINE HYDROCHLORIDE
     Dosage: 10 MG MILLIGRAM(S), UNK
     Dates: start: 20181110
  24. FLUOXETINE [Concomitant]
     Active Substance: FLUOXETINE HYDROCHLORIDE
     Dosage: 40 MG MILLIGRAM(S), UNK
     Dates: start: 20181010
  25. ISENTRESS [Concomitant]
     Active Substance: RALTEGRAVIR POTASSIUM
     Dosage: 400 MG MILLIGRAM(S), UNK
     Dates: start: 20111208
  26. TRAZODONE [Concomitant]
     Active Substance: TRAZODONE HYDROCHLORIDE
     Dosage: 100 MG MILLIGRAM(S), UNK
     Dates: start: 20180813
  27. BUPROPION. [Concomitant]
     Active Substance: BUPROPION
     Dosage: 75 MG MILLIGRAM(S), UNK
     Dates: start: 20180913
  28. EFFEXOR [Concomitant]
     Active Substance: VENLAFAXINE HYDROCHLORIDE
     Dosage: 150 MG MILLIGRAM(S), UNK
     Dates: start: 20111208
  29. HYDROCODONE BITARTRATE AND ACETAMINOPHEN [Concomitant]
     Active Substance: ACETAMINOPHEN\HYDROCODONE BITARTRATE
     Dosage: 7.5/325 MG, TAB
     Dates: start: 20180418
  30. HYDROCODONE BITARTRATE AND ACETAMINOPHEN [Concomitant]
     Active Substance: ACETAMINOPHEN\HYDROCODONE BITARTRATE
     Dosage: 7.5/325 MG, TAB
     Dates: start: 20181017
  31. FLUOXETINE [Concomitant]
     Active Substance: FLUOXETINE HYDROCHLORIDE
     Dosage: 40 MG MILLIGRAM(S), UNK
     Dates: start: 20180711
  32. GABAPENTIN. [Concomitant]
     Active Substance: GABAPENTIN
     Dosage: 800 MG MILLIGRAM(S), UNK
     Dates: start: 20180611
  33. MORPHINE SULFATE. [Concomitant]
     Active Substance: MORPHINE SULFATE
     Dosage: 60 MG MILLIGRAM(S), UNK
     Dates: start: 20180917
  34. OMEPRAZOLE. [Concomitant]
     Active Substance: OMEPRAZOLE
     Dosage: 40 MG MILLIGRAM(S), UNK
     Dates: start: 20181022

REACTIONS (2)
  - Product dose omission [Unknown]
  - Malaise [Unknown]
